FAERS Safety Report 8585282-7 (Version None)
Quarter: 2012Q3

REPORT INFORMATION
  Report Type: 
  Country: None (occurrence: None)
  Receive Date: 20120810
  Receipt Date: 20120809
  Transmission Date: 20120928
  Serious: Yes (Hospitalization)
  Sender: FDA-Public Use
  Company Number: PHHY2012IN068802

PATIENT
  Age: 40 Year
  Sex: Male

DRUGS (3)
  1. CLOZAPINE [Suspect]
     Indication: SCHIZOPHRENIA, PARANOID TYPE
     Dosage: 12.5 MG, DAILY
  2. CLOZAPINE [Suspect]
     Dosage: 300 MG, DAILY
  3. CLOZAPINE [Suspect]
     Dosage: 200 MG, DAILY

REACTIONS (12)
  - DELUSION [None]
  - DYSPNOEA [None]
  - THOUGHT BLOCKING [None]
  - RALES [None]
  - DELIRIUM [None]
  - DISORIENTATION [None]
  - URINARY INCONTINENCE [None]
  - SLEEP DISORDER [None]
  - SALIVARY HYPERSECRETION [None]
  - PNEUMONIA ASPIRATION [None]
  - HALLUCINATION, AUDITORY [None]
  - DYSARTHRIA [None]
